FAERS Safety Report 15206700 (Version 1)
Quarter: 2018Q3

REPORT INFORMATION
  Report Type: Spontaneous
  Country: FR (occurrence: FR)
  Receive Date: 20180727
  Receipt Date: 20180727
  Transmission Date: 20181010
  Serious: Yes (Hospitalization)
  Sender: FDA-Public Use
  Company Number: FR-TEVA-2018-FR-930274

PATIENT
  Age: 86 Year
  Sex: Female
  Weight: 51 kg

DRUGS (2)
  1. OFLOXACINE [Suspect]
     Active Substance: OFLOXACIN
     Indication: SEPTIC SHOCK
     Dosage: 400 MILLIGRAM DAILY;
     Route: 048
     Dates: start: 20180521, end: 20180528
  2. KARDEGIC [Suspect]
     Active Substance: ASPIRIN DL-LYSINE
     Indication: THROMBOSIS PROPHYLAXIS
     Dosage: 75 MILLIGRAM DAILY;
     Route: 048
     Dates: start: 20180521, end: 20180526

REACTIONS (2)
  - Anaemia [Recovered/Resolved]
  - Agranulocytosis [Recovered/Resolved]

NARRATIVE: CASE EVENT DATE: 20180524
